FAERS Safety Report 5571477-3 (Version None)
Quarter: 2007Q4

REPORT INFORMATION
  Report Type: 
  Country: None (occurrence: None)
  Receive Date: 20071221
  Receipt Date: 20071212
  Transmission Date: 20080405
  Serious: Yes (Other)
  Sender: FDA-Public Use
  Company Number: BR-ROCHE-537163

PATIENT
  Age: 22 Month
  Sex: Female
  Weight: 12 kg

DRUGS (1)
  1. RIVOTRIL [Suspect]
     Indication: DRUG USE FOR UNKNOWN INDICATION
     Route: 048
     Dates: start: 20071211, end: 20071211

REACTIONS (4)
  - ACCIDENTAL DRUG INTAKE BY CHILD [None]
  - BALANCE DISORDER [None]
  - SOMNOLENCE [None]
  - VOMITING [None]
